FAERS Safety Report 7282680-9 (Version None)
Quarter: 2011Q1

REPORT INFORMATION
  Report Type: 
  Country: None (occurrence: None)
  Receive Date: 20110209
  Receipt Date: 20110128
  Transmission Date: 20110831
  Serious: Yes (Hospitalization, Other)
  Sender: FDA-Public Use
  Company Number: US-ELI_LILLY_AND_COMPANY-US201007002951

PATIENT
  Sex: Male

DRUGS (17)
  1. MAXZIDE [Concomitant]
  2. FORTEO [Suspect]
     Indication: OSTEOPOROSIS
     Dosage: 20 UG, DAILY (1/D)
     Dates: start: 20100208
  3. FORTEO [Suspect]
     Dosage: 20 UG, DAILY (1/D)
  4. FOLIC ACID [Concomitant]
  5. TRAMADOL [Concomitant]
     Indication: PAIN
  6. VITAMIN D [Concomitant]
     Dosage: 1.25 MG, UNKNOWN
  7. CENTRUM SILVER [Concomitant]
  8. FORTEO [Suspect]
     Dosage: 20 UG, DAILY (1/D)
     Dates: end: 20100618
  9. GABAPEN [Concomitant]
  10. THYROID THERAPY [Concomitant]
  11. IMODIUM MULTI-SYMPTOM RELIEF [Concomitant]
     Indication: ANTIDIARRHOEAL SUPPORTIVE CARE
  12. ASPIRIN [Concomitant]
     Dosage: 81 D/F, 1/2 OF 81
  13. FORTEO [Suspect]
     Dosage: 20 UG, DAILY (1/D)
     Dates: start: 20101106
  14. CALCIUM 600 PLUS VITAMIN D [Concomitant]
  15. PREDNISONE [Concomitant]
  16. ALLOPURINOL [Concomitant]
  17. COZAAR [Concomitant]

REACTIONS (4)
  - MEDICATION ERROR [None]
  - GAIT DISTURBANCE [None]
  - FRACTURE NONUNION [None]
  - INTENTIONAL DRUG MISUSE [None]
